FAERS Safety Report 9256247 (Version 1)
Quarter: 2013Q2

REPORT INFORMATION
  Report Type: Spontaneous
  Country: US (occurrence: US)
  Receive Date: 20130425
  Receipt Date: 20130425
  Transmission Date: 20140414
  Serious: No
  Sender: FDA-Public Use
  Company Number: US-AMGEN-USASP2012063850

PATIENT
  Age: 54 Year
  Sex: Female
  Weight: 60.45 kg

DRUGS (9)
  1. PEGFILGRASTIM [Suspect]
     Indication: CHEMOTHERAPY
     Dosage: 6 MG, UNK
     Route: 058
     Dates: start: 20090925, end: 20091107
  2. PEGFILGRASTIM [Suspect]
     Dosage: 6 MG, UNK
     Route: 058
     Dates: start: 20120406
  3. BEVACIZUMAB [Suspect]
     Indication: BREAST CANCER
     Dosage: UNK UNK, Q2WK
     Route: 042
     Dates: start: 20090925, end: 20100205
  4. BEVACIZUMAB [Suspect]
     Dosage: UNK UNK, Q2WK
     Dates: start: 20120406
  5. DOXORUBICIN [Suspect]
     Indication: BREAST CANCER
     Dosage: 60 MG/M2, Q2WK
     Route: 040
     Dates: start: 20090925, end: 20091106
  6. DOXORUBICIN [Suspect]
     Dosage: 60 MG/M2, Q2WK
     Route: 040
     Dates: start: 20120406
  7. CYCLOPHOSPHAMIDE [Concomitant]
     Indication: BREAST CANCER
     Dosage: 600 MG, Q2WK
     Route: 042
     Dates: start: 20090925, end: 20091106
  8. CYCLOPHOSPHAMIDE [Concomitant]
     Dosage: 600 MG, Q2WK
     Route: 042
     Dates: start: 20120406
  9. PACLITAXEL [Concomitant]
     Indication: BREAST CANCER
     Dosage: 80 MG/M2, QWK
     Route: 042
     Dates: end: 20100219

REACTIONS (1)
  - Ejection fraction decreased [Recovered/Resolved]
